FAERS Safety Report 7476518-4 (Version None)
Quarter: 2011Q2

REPORT INFORMATION
  Report Type: 
  Country: None (occurrence: None)
  Receive Date: 20110512
  Receipt Date: 20110506
  Transmission Date: 20111010
  Serious: Yes (Other)
  Sender: FDA-Public Use
  Company Number: PHHY2011JP38960

PATIENT
  Sex: Female

DRUGS (1)
  1. ZADITEN [Suspect]
     Indication: SEASONAL ALLERGY
     Dosage: 1 MG
     Route: 048
     Dates: start: 20110428, end: 20110428

REACTIONS (6)
  - MALAISE [None]
  - MENTAL IMPAIRMENT [None]
  - SOMNOLENCE [None]
  - SUDDEN VISUAL LOSS [None]
  - LOSS OF CONSCIOUSNESS [None]
  - ANAEMIA [None]
